FAERS Safety Report 9415178 (Version 1)
Quarter: 2013Q3

REPORT INFORMATION
  Report Type: Spontaneous
  Country: US (occurrence: US)
  Receive Date: 20130723
  Receipt Date: 20130723
  Transmission Date: 20140515
  Serious: No
  Sender: FDA-Public Use
  Company Number: US-GALDERMA-US-GDP-12413894

PATIENT
  Age: 73 Year
  Sex: Male
  Weight: 90 kg

DRUGS (10)
  1. ORACEA [Suspect]
     Indication: ROSACEA
     Route: 048
     Dates: start: 201201, end: 201204
  2. ORACEA [Suspect]
     Route: 048
     Dates: start: 20120428, end: 20120527
  3. ORACEA [Suspect]
     Route: 061
     Dates: start: 201107, end: 201110
  4. ALLOPURINOL [Concomitant]
     Indication: GOUT
     Route: 048
  5. SIMVASTATIN [Concomitant]
     Indication: HYPERCHOLESTEROLAEMIA
     Route: 048
     Dates: start: 2000
  6. LOSARTIN POTASSIUM [Concomitant]
     Indication: HYPERTENSION
     Route: 048
  7. CARVEDILOL [Concomitant]
     Indication: HYPERTENSION
     Route: 048
     Dates: start: 2000
  8. NIFEDIPINE [Concomitant]
     Indication: HYPERTENSION
     Dates: start: 2000
  9. ISOSORBIDE [Concomitant]
     Indication: HYPERTENSION
     Dates: start: 2000
  10. LISINOPRIL [Concomitant]
     Indication: HYPERTENSION
     Dates: start: 2000

REACTIONS (1)
  - Drug ineffective [None]
